FAERS Safety Report 6486201-X (Version None)
Quarter: 2009Q4

REPORT INFORMATION
  Report Type: 
  Country: None (occurrence: None)
  Receive Date: 20091207
  Receipt Date: 20091120
  Transmission Date: 20100525
  Serious: Yes (Other)
  Sender: FDA-Public Use
  Company Number: 2009BM000231

PATIENT
  Age: 24 Year
  Sex: Female
  Weight: 97.2 kg

DRUGS (6)
  1. KUVAN (SAPROPTERIN DIHYDROCHLORID [Suspect]
     Indication: PHENYLKETONURIA
     Dosage: 1000 MG;QD;PO ; 1000 MG;PO ; 1000 MG;QD;PO
     Route: 048
     Dates: start: 20090709, end: 20090912
  2. KUVAN (SAPROPTERIN DIHYDROCHLORID [Suspect]
     Indication: PHENYLKETONURIA
     Dosage: 1000 MG;QD;PO ; 1000 MG;PO ; 1000 MG;QD;PO
     Route: 048
     Dates: start: 20091001, end: 20091109
  3. KUVAN (SAPROPTERIN DIHYDROCHLORID [Suspect]
     Indication: PHENYLKETONURIA
     Dosage: 1000 MG;QD;PO ; 1000 MG;PO ; 1000 MG;QD;PO
     Route: 048
     Dates: start: 20091110
  4. CLARITIN /00917501/ [Concomitant]
  5. PRENATAL VITAMINS /01549301/ [Concomitant]
  6. NUTRIENTS WITHOUT PHENYLALANINE [Concomitant]

REACTIONS (4)
  - BLIGHTED OVUM [None]
  - HAEMORRHAGE [None]
  - PREGNANCY [None]
  - ROAD TRAFFIC ACCIDENT [None]
